FAERS Safety Report 21149506 (Version 1)
Quarter: 2022Q3

REPORT INFORMATION
  Report Type: Spontaneous
  Country: GB (occurrence: GB)
  Receive Date: 20220729
  Receipt Date: 20220729
  Transmission Date: 20221027
  Serious: Yes (Hospitalization, Other)
  Sender: FDA-Public Use
  Company Number: None

PATIENT
  Age: 61 Year
  Sex: Male

DRUGS (10)
  1. METFORMIN [Suspect]
     Active Substance: METFORMIN HYDROCHLORIDE
     Indication: Product used for unknown indication
     Dosage: UNK, AM(ONE TO BE TAKEN EACH MORNING 28 TABLET)
     Route: 065
  2. OMEPRAZOLE [Suspect]
     Active Substance: OMEPRAZOLE
     Indication: Product used for unknown indication
     Dosage: UNK
     Route: 065
  3. DOMPERIDONE [Concomitant]
     Active Substance: DOMPERIDONE
     Dosage: UNK, TID(TWO 5ML SPOONFULS TO BE TAKEN UP TO THREE TIMES A DAY)
     Route: 065
     Dates: start: 20211229
  4. MORPHINE [Concomitant]
     Active Substance: MORPHINE
     Dosage: UNK, BID(TWO TO BE TAKEN EVERY 12 HOURS)
     Route: 065
  5. ONDANSETRON [Concomitant]
     Active Substance: ONDANSETRON
     Dosage: UNK, PRN(BD/PRN 30 TABLET PRN)
     Route: 065
     Dates: start: 20211231
  6. ZOPICLONE [Concomitant]
     Active Substance: ZOPICLONE
     Dosage: UNK, HS(ONE TO BE TAKEN AT NIGHT/PRN 14 TABLET 1ON REGULAR)
     Route: 065
  7. MORPHINE SULFATE [Concomitant]
     Active Substance: MORPHINE SULFATE
     Dosage: UNK, QID(2.5 - 5MLS TO BE TAKEN UP TO FOUR TIMES A DAY/PRN 300 ML)
     Route: 065
  8. PEPPERMINT OIL [Concomitant]
     Active Substance: PEPPERMINT OIL
     Dosage: UNK, TID(GASTRO-RESISTANT CAPSULES ONE TO BE TAKEN THREE TIMES A DAY PRN)
     Route: 065
     Dates: start: 20220221
  9. FERROUS FUMARATE [Concomitant]
     Active Substance: FERROUS FUMARATE
     Dosage: UNK, TID(ONE TO BE TAKEN THREE TIMES A DAY 168 TABLET WAS TAKING AT HOME)
     Route: 065
     Dates: start: 20220208
  10. COSMOCOL [Concomitant]
     Dosage: UNK, BID(1-2 TWICE DAILY 30 SACHET PRN)
     Route: 065
     Dates: start: 20211220

REACTIONS (2)
  - Blood lactic acid increased [Recovered/Resolved]
  - Hypomagnesaemia [Recovered/Resolved]
